FAERS Safety Report 7749252-0 (Version None)
Quarter: 2011Q3

REPORT INFORMATION
  Report Type: 
  Country: None (occurrence: None)
  Receive Date: 20110908
  Receipt Date: 20110907
  Transmission Date: 20111222
  Serious: Yes (Death, Life-Threatening, Hospitalization)
  Sender: FDA-Public Use
  Company Number: 2011SP037047

PATIENT
  Age: 70 Year
  Sex: Male
  Weight: 71 kg

DRUGS (12)
  1. DIOVAN HCT [Concomitant]
  2. INSULINE [Concomitant]
  3. ALLOPURINOL [Concomitant]
  4. LAMICTAL [Concomitant]
  5. TEMODAL [Suspect]
     Indication: GLIOBLASTOMA
     Dosage: 140 MG;QD;PO
     Route: 048
     Dates: start: 20110628, end: 20110722
  6. DEXAMETHASONE [Concomitant]
  7. SIOFOR [Concomitant]
  8. CALCIUM CARBONATE [Concomitant]
  9. PANTOPRAZOLE [Concomitant]
  10. CONCO COR [Concomitant]
  11. TORSEMIDE [Concomitant]
  12. KEPPRA [Concomitant]

REACTIONS (3)
  - SEPSIS [None]
  - NEUTROPENIA [None]
  - PANCYTOPENIA [None]
